FAERS Safety Report 23269008 (Version 2)
Quarter: 2024Q3

REPORT INFORMATION
  Report Type: Report from Study
  Country: US (occurrence: US)
  Receive Date: 20231206
  Receipt Date: 20240812
  Transmission Date: 20241017
  Serious: No
  Sender: AMGEN
  Company Number: US-AMGEN-USASP2023216712

PATIENT
  Age: 78 Year
  Sex: Male

DRUGS (2)
  1. REPATHA [Suspect]
     Active Substance: EVOLOCUMAB
     Indication: Blood cholesterol increased
     Dosage: 140 MILLIGRAM, Q2WK
     Route: 065
     Dates: start: 202312
  2. REPATHA [Suspect]
     Active Substance: EVOLOCUMAB
     Indication: Blood calcium increased
     Dosage: 140 MILLIGRAM, Q2WK
     Route: 065

REACTIONS (4)
  - Hypoacusis [Unknown]
  - Wrong technique in product usage process [Unknown]
  - Device difficult to use [Unknown]
  - Drug dose omission by device [Unknown]

NARRATIVE: CASE EVENT DATE: 20231204
